FAERS Safety Report 11701531 (Version 1)
Quarter: 2015Q4

REPORT INFORMATION
  Report Type: Spontaneous
  Country: JP (occurrence: JP)
  Receive Date: 20151105
  Receipt Date: 20151105
  Transmission Date: 20160304
  Serious: Yes (Hospitalization)
  Sender: FDA-Public Use
  Company Number: JP-PFIZER INC-2015346026

PATIENT

DRUGS (1)
  1. JZOLOFT [Suspect]
     Active Substance: SERTRALINE HYDROCHLORIDE
     Dosage: 12.5 MG, UNK
     Route: 048

REACTIONS (1)
  - Temporal lobe epilepsy [Unknown]
